FAERS Safety Report 4784272-X (Version None)
Quarter: 2005Q3

REPORT INFORMATION
  Report Type: 
  Country: None (occurrence: None)
  Receive Date: 20050928
  Receipt Date: 20050818
  Transmission Date: 20060218
  Serious: Yes (Hospitalization)
  Sender: FDA-Public Use
  Company Number: 2005BI015613

PATIENT
  Age: 47 Year
  Sex: Female

DRUGS (8)
  1. AMEVIVE [Suspect]
     Indication: PSORIASIS
     Dosage: 15 MG; QW; IM
     Route: 030
     Dates: start: 20031007, end: 20040120
  2. AMEVIVE [Suspect]
     Indication: PSORIASIS
     Dosage: 15 MG; QW; IM
     Route: 030
     Dates: start: 20050623, end: 20050708
  3. AMEVIVE [Suspect]
     Indication: PSORIASIS
     Dosage: 15 MG; QW; IM
     Route: 030
     Dates: start: 20050809
  4. PROMETHAZINE [Concomitant]
  5. INSULIN [Concomitant]
  6. FAMOTIDINE [Concomitant]
  7. PANCRELIPASE [Concomitant]
  8. METOCLOPRAMIDE [Concomitant]

REACTIONS (1)
  - CELLULITIS [None]
